FAERS Safety Report 25903174 (Version 1)
Quarter: 2025Q4

REPORT INFORMATION
  Report Type: Report from Study
  Country: US (occurrence: US)
  Receive Date: 20251009
  Receipt Date: 20251009
  Transmission Date: 20260117
  Serious: Yes (Death, Hospitalization)
  Sender: SERVIER
  Company Number: US-SERVIER-S25014206

PATIENT

DRUGS (7)
  1. CALASPARGASE PEGOL [Suspect]
     Active Substance: CALASPARGASE PEGOL
     Indication: Acute leukaemia
     Dosage: 3750 U, ONE DOSE
     Route: 042
     Dates: start: 20250718, end: 20250718
  2. CYTARABINE [Suspect]
     Active Substance: CYTARABINE
     Indication: Acute leukaemia
     Dosage: 70 MG, OTHER
     Route: 037
     Dates: start: 20250714
  3. CYTARABINE [Suspect]
     Active Substance: CYTARABINE
     Dosage: 40 MG, TWICE WEEKLY
     Route: 037
     Dates: start: 20250718
  4. DAUNORUBICIN [Suspect]
     Active Substance: DAUNORUBICIN
     Indication: Acute leukaemia
     Dosage: 49 MG, EVERY 1 WEEK (DAYS 1,8,15,22)
     Route: 042
     Dates: start: 20250715, end: 20250722
  5. METHOTREXATE [Suspect]
     Active Substance: METHOTREXATE
     Indication: Acute leukaemia
     Dosage: 15 MG, ONE DOSE (DAYS 8, 29)
     Route: 037
     Dates: start: 20250722, end: 20250722
  6. PREDNISOLONE [Suspect]
     Active Substance: PREDNISOLONE
     Indication: Acute leukaemia
     Dosage: 30 MG, BID (DAYS 1-28)
     Route: 048
     Dates: start: 20250715, end: 20250724
  7. VINCRISTINE SULFATE [Suspect]
     Active Substance: VINCRISTINE SULFATE
     Indication: Acute leukaemia
     Dosage: 2 MG, EVERY 1 WEEK (DAYS 1-28)
     Route: 042
     Dates: start: 20250715, end: 20250722

REACTIONS (5)
  - Septic shock [Fatal]
  - Bacterial sepsis [Fatal]
  - Abdominal compartment syndrome [Not Recovered/Not Resolved]
  - Generalised oedema [Not Recovered/Not Resolved]
  - Thrombocytopenia [Unknown]

NARRATIVE: CASE EVENT DATE: 20250723
